FAERS Safety Report 13296915 (Version 1)
Quarter: 2017Q1

REPORT INFORMATION
  Report Type: Spontaneous
  Country: US (occurrence: US)
  Receive Date: 20170306
  Receipt Date: 20170306
  Transmission Date: 20170428
  Serious: No
  Sender: FDA-Public Use
  Company Number: US-TEVA-719736ACC

PATIENT
  Age: 39 Year
  Sex: Female
  Weight: 99.77 kg

DRUGS (3)
  1. MUCUS D [Suspect]
     Active Substance: GUAIFENESIN\PSEUDOEPHEDRINE HYDROCHLORIDE
     Indication: PRODUCTIVE COUGH
     Dosage: PSEUDOEPHEDRINE HYDROCHLORIDE/GUAIFENESIN : 60/600 MG
     Route: 048
     Dates: start: 20161027, end: 20161030
  2. VICKS DAYQUIL NYQUIL COLD + FLU [Concomitant]
     Dates: start: 20161025, end: 20161030
  3. AMOXICILLIN. [Concomitant]
     Active Substance: AMOXICILLIN

REACTIONS (1)
  - Drug ineffective [Unknown]

NARRATIVE: CASE EVENT DATE: 20161029
